FAERS Safety Report 8098737-9 (Version None)
Quarter: 2012Q1

REPORT INFORMATION
  Report Type: 
  Country: None (occurrence: None)
  Receive Date: 20120131
  Receipt Date: 20120125
  Transmission Date: 20120608
  Serious: Yes (Other)
  Sender: FDA-Public Use
  Company Number: US-PFIZER INC-2012021484

PATIENT
  Age: 55 Year
  Sex: Female

DRUGS (2)
  1. XANAX [Suspect]
     Dosage: UNK
  2. BUTRANS [Suspect]
     Dosage: UNK

REACTIONS (2)
  - FEELING DRUNK [None]
  - CONFUSIONAL STATE [None]
